FAERS Safety Report 11344153 (Version 2)
Quarter: 2016Q3

REPORT INFORMATION
  Report Type: Spontaneous
  Country: US (occurrence: US)
  Receive Date: 20150806
  Receipt Date: 20160805
  Transmission Date: 20161109
  Serious: Yes (Hospitalization)
  Sender: FDA-Public Use
  Company Number: US-BAYER-2015-388268

PATIENT
  Age: 35 Year
  Sex: Female
  Weight: 70.3 kg

DRUGS (1)
  1. MIRENA [Suspect]
     Active Substance: LEVONORGESTREL
     Indication: CONTRACEPTION
     Dosage: 20 MCG/24HR, CONT
     Route: 015
     Dates: start: 201406, end: 201412

REACTIONS (17)
  - Post procedural haemorrhage [None]
  - Procedural pain [None]
  - Fear [Not Recovered/Not Resolved]
  - Depression [None]
  - Headache [None]
  - Injury [None]
  - Physical disability [None]
  - Nervousness [Not Recovered/Not Resolved]
  - Anhedonia [Not Recovered/Not Resolved]
  - Abdominal discomfort [None]
  - Emotional distress [Not Recovered/Not Resolved]
  - Abdominal pain lower [None]
  - Anxiety [None]
  - Feeling abnormal [Not Recovered/Not Resolved]
  - Medical device pain [None]
  - Quality of life decreased [None]
  - Deformity [None]

NARRATIVE: CASE EVENT DATE: 2014
